FAERS Safety Report 4850876-9 (Version None)
Quarter: 2005Q4

REPORT INFORMATION
  Report Type: 
  Country: None (occurrence: None)
  Receive Date: 20051212
  Receipt Date: 20040220
  Transmission Date: 20060501
  Serious: Yes (Other)
  Sender: FDA-Public Use
  Company Number: US-GLAXOSMITHKLINE-A0500187A

PATIENT
  Sex: Male

DRUGS (1)
  1. PAXIL [Suspect]
     Indication: DEPRESSION
     Route: 048
     Dates: start: 20010701

REACTIONS (13)
  - ABDOMINAL PAIN [None]
  - AGGRESSION [None]
  - AGITATION [None]
  - ASTHENIA [None]
  - CONFUSIONAL STATE [None]
  - DIZZINESS [None]
  - DRUG WITHDRAWAL SYNDROME [None]
  - FATIGUE [None]
  - INFLUENZA [None]
  - MEMORY IMPAIRMENT [None]
  - PARAESTHESIA [None]
  - SELF MUTILATION [None]
  - VERTIGO [None]
